FAERS Safety Report 23689400 (Version 1)
Quarter: 2024Q1

REPORT INFORMATION
  Report Type: Spontaneous
  Country: CN (occurrence: None)
  Receive Date: 20240331
  Receipt Date: 20240331
  Transmission Date: 20240410
  Serious: Yes (Other)
  Sender: FDA-Public Use
  Company Number: CN-ROCHE-3535007

PATIENT
  Sex: Female

DRUGS (4)
  1. AVASTIN [Suspect]
     Active Substance: BEVACIZUMAB
     Indication: Lung adenocarcinoma
     Route: 065
     Dates: start: 2019
  2. AVASTIN [Suspect]
     Active Substance: BEVACIZUMAB
     Indication: Metastases to central nervous system
  3. ALECTINIB [Concomitant]
     Active Substance: ALECTINIB
     Indication: Lung adenocarcinoma
     Dates: start: 2020
  4. ALECTINIB [Concomitant]
     Active Substance: ALECTINIB
     Indication: Metastases to central nervous system

REACTIONS (3)
  - Metastases to central nervous system [Recovering/Resolving]
  - Vision blurred [Unknown]
  - Blood pressure increased [Unknown]
